FAERS Safety Report 11930940 (Version 3)
Quarter: 2017Q1

REPORT INFORMATION
  Report Type: Spontaneous
  Country: DK (occurrence: DK)
  Receive Date: 20160120
  Receipt Date: 20170117
  Transmission Date: 20170428
  Serious: Yes (Hospitalization, Other)
  Sender: FDA-Public Use
  Company Number: DK-BAXTER-2016BAX001319

PATIENT
  Age: 60 Year
  Sex: Female

DRUGS (2)
  1. EPIRUBICIN EBEWE [Suspect]
     Active Substance: EPIRUBICIN
     Indication: BREAST CANCER
     Route: 065
     Dates: start: 20110510, end: 20110530
  2. SENDOXAN [Suspect]
     Active Substance: CYCLOPHOSPHAMIDE
     Indication: BREAST CANCER
     Route: 065
     Dates: start: 20110510, end: 20110530

REACTIONS (10)
  - Complex partial seizures [Unknown]
  - Dyspnoea [Not Recovered/Not Resolved]
  - Breast cancer recurrent [Unknown]
  - Cardiomyopathy [Not Recovered/Not Resolved]
  - Ankle fracture [Unknown]
  - Breast pain [Unknown]
  - Cerebral infarction [Unknown]
  - Metastases to lung [Unknown]
  - Cardiac failure [Not Recovered/Not Resolved]
  - Chest pain [Not Recovered/Not Resolved]

NARRATIVE: CASE EVENT DATE: 201206
